FAERS Safety Report 4796297-9 (Version None)
Quarter: 2005Q4

REPORT INFORMATION
  Report Type: 
  Country: None (occurrence: None)
  Receive Date: 20051005
  Receipt Date: 20051005
  Transmission Date: 20060501
  Serious: Yes (Hospitalization)
  Sender: FDA-Public Use
  Company Number: None

PATIENT
  Age: 47 Year
  Sex: Female
  Weight: 90 kg

DRUGS (6)
  1. STAVUDINE [Suspect]
     Indication: HIV INFECTION
     Dosage: 100 MG PO Q 24H
     Route: 048
  2. FLUTICASONE [Concomitant]
  3. THEOPHYLLINE [Concomitant]
  4. RANITIDINE [Concomitant]
  5. LOPINAVIR / RITONAVIR [Concomitant]
  6. EMTRICITABINA [Concomitant]

REACTIONS (4)
  - ABDOMINAL PAIN [None]
  - DEHYDRATION [None]
  - LACTIC ACIDOSIS [None]
  - ORAL INTAKE REDUCED [None]
